FAERS Safety Report 19306332 (Version 1)
Quarter: 2021Q2

REPORT INFORMATION
  Report Type: Spontaneous
  Country: US (occurrence: US)
  Receive Date: 20210525
  Receipt Date: 20210525
  Transmission Date: 20210717
  Serious: Yes (Hospitalization)
  Sender: FDA-Public Use
  Company Number: US-CELGENEUS-USA-20210504824

PATIENT

DRUGS (1)
  1. BREYANZI [Suspect]
     Active Substance: LISOCABTAGENE MARALEUCEL
     Indication: PRODUCT USED FOR UNKNOWN INDICATION
     Dosage: DOSE : UNAVAILABLE;     FREQ : UNAVAILABLE.  PATIENT HAD ONLY RECEIVED ONE DOSE.
     Route: 065
     Dates: start: 20210504, end: 20210504

REACTIONS (1)
  - Cytokine release syndrome [Unknown]

NARRATIVE: CASE EVENT DATE: 20210512
